FAERS Safety Report 12453812 (Version 1)
Quarter: 2016Q2

REPORT INFORMATION
  Report Type: Spontaneous
  Country: US (occurrence: US)
  Receive Date: 20160609
  Receipt Date: 20160609
  Transmission Date: 20160815
  Serious: Yes (Death)
  Sender: FDA-Public Use
  Company Number: US-ASTRAZENECA-2016SE61940

PATIENT
  Age: 51 Year
  Sex: Male

DRUGS (1)
  1. PRILOSEC OTC [Suspect]
     Active Substance: OMEPRAZOLE MAGNESIUM
     Route: 048
     Dates: start: 2010

REACTIONS (5)
  - Product use issue [Unknown]
  - Oesophageal carcinoma [Fatal]
  - Oropharyngeal pain [Unknown]
  - Dysphonia [Unknown]
  - Symptom masked [Unknown]
